FAERS Safety Report 9567500 (Version 1)
Quarter: 2013Q3

REPORT INFORMATION
  Report Type: Spontaneous
  Country: US (occurrence: US)
  Receive Date: 20130930
  Receipt Date: 20130930
  Transmission Date: 20140515
  Serious: No
  Sender: FDA-Public Use
  Company Number: US-AMGEN-USASP2012073657

PATIENT
  Sex: Female
  Weight: 54.42 kg

DRUGS (2)
  1. ENBREL [Suspect]
     Indication: RHEUMATOID ARTHRITIS
     Dosage: UNK
     Dates: start: 2003
  2. ENBREL [Suspect]

REACTIONS (3)
  - Wrong technique in drug usage process [Unknown]
  - Injection site bruising [Not Recovered/Not Resolved]
  - Injection site swelling [Unknown]
